FAERS Safety Report 8993774 (Version 1)
Quarter: 2013Q1

REPORT INFORMATION
  Report Type: Spontaneous
  Country: US (occurrence: US)
  Receive Date: 20130102
  Receipt Date: 20130102
  Transmission Date: 20140127
  Serious: No
  Sender: FDA-Public Use
  Company Number: US-AMGEN-USASP2012084061

PATIENT
  Age: 65 Year
  Sex: Female

DRUGS (1)
  1. ENBREL [Suspect]
     Indication: RHEUMATOID ARTHRITIS
     Dosage: 50 MG, QWK
     Dates: start: 19991207

REACTIONS (4)
  - Cough [Recovered/Resolved]
  - Asthma [Not Recovered/Not Resolved]
  - Lung infection [Recovered/Resolved]
  - Injection site pain [Recovered/Resolved]
